FAERS Safety Report 4653135-2 (Version None)
Quarter: 2005Q2

REPORT INFORMATION
  Report Type: 
  Country: None (occurrence: None)
  Receive Date: 20050503
  Receipt Date: 20050418
  Transmission Date: 20051028
  Serious: Yes (Disabling)
  Sender: FDA-Public Use
  Company Number: 200402138

PATIENT
  Age: 57 Year
  Sex: Female

DRUGS (1)
  1. BOTOX [Suspect]
     Indication: SKIN WRINKLING
     Dates: start: 20040205, end: 20040205

REACTIONS (11)
  - ARTHRALGIA [None]
  - DIFFICULTY IN WALKING [None]
  - DRUG HYPERSENSITIVITY [None]
  - ECCHYMOSIS [None]
  - GENERALISED OEDEMA [None]
  - GRIP STRENGTH DECREASED [None]
  - JOINT SWELLING [None]
  - MALAISE [None]
  - NO REACTION ON PREVIOUS EXPOSURE TO DRUG [None]
  - OEDEMA PERIPHERAL [None]
  - SERUM SICKNESS [None]
